FAERS Safety Report 6823739-7 (Version None)
Quarter: 2010Q3

REPORT INFORMATION
  Report Type: 
  Country: None (occurrence: None)
  Receive Date: 20100708
  Receipt Date: 20100701
  Transmission Date: 20110219
  Serious: Yes (Hospitalization)
  Sender: FDA-Public Use
  Company Number: DE-B.I. PHARMACEUTICALS,INC./RIDGEFIELD-2010-DE-03414DE

PATIENT
  Sex: Male
  Weight: 80 kg

DRUGS (2)
  1. ALNA OCAS [Suspect]
     Dosage: 1 ANZ
     Route: 048
     Dates: start: 20080115
  2. LIMPTAR [Suspect]

REACTIONS (2)
  - ATRIAL FIBRILLATION [None]
  - TACHYCARDIA [None]
